FAERS Safety Report 20214146 (Version 1)
Quarter: 2021Q4

REPORT INFORMATION
  Report Type: Spontaneous
  Country: HR (occurrence: HR)
  Receive Date: 20211221
  Receipt Date: 20211221
  Transmission Date: 20220303
  Serious: Yes (Other)
  Sender: FDA-Public Use
  Company Number: None

PATIENT
  Sex: Male

DRUGS (1)
  1. CLOZAPINE [Suspect]
     Active Substance: CLOZAPINE
     Indication: Product used for unknown indication
     Dosage: UNK(50 TBL)
     Route: 048
     Dates: start: 20210609, end: 20210609

REACTIONS (6)
  - Suicide attempt [Unknown]
  - Dyspnoea [Unknown]
  - Confusional state [Unknown]
  - Tachycardia [Unknown]
  - Intentional overdose [Unknown]
  - Drug abuse [Unknown]

NARRATIVE: CASE EVENT DATE: 20210609
